FAERS Safety Report 25766085 (Version 1)
Quarter: 2025Q3

REPORT INFORMATION
  Report Type: Spontaneous
  Country: US (occurrence: US)
  Receive Date: 20250905
  Receipt Date: 20250905
  Transmission Date: 20251020
  Serious: No
  Sender: DOMPE FARMACEUTICI
  Company Number: US-FARMAPROD-202408-2785

PATIENT
  Sex: Female

DRUGS (4)
  1. OXERVATE [Suspect]
     Active Substance: CENEGERMIN-BKBJ
     Indication: Neurotrophic keratopathy
     Route: 047
     Dates: start: 20240621, end: 20240721
  2. CAPECITABINE [Concomitant]
     Active Substance: CAPECITABINE
  3. RIVAROXABAN [Concomitant]
     Active Substance: RIVAROXABAN
  4. LATANOPROST [Concomitant]
     Active Substance: LATANOPROST

REACTIONS (2)
  - Drug ineffective [Unknown]
  - Eye pain [Recovered/Resolved]
